FAERS Safety Report 5501907-4 (Version None)
Quarter: 2007Q4

REPORT INFORMATION
  Report Type: 
  Country: None (occurrence: None)
  Receive Date: 20071030
  Receipt Date: 20071019
  Transmission Date: 20080405
  Serious: Yes (Hospitalization, Other)
  Sender: FDA-Public Use
  Company Number: JP-ROCHE-509166

PATIENT
  Sex: Male
  Weight: 3.2 kg

DRUGS (4)
  1. RIVOTRIL [Suspect]
     Indication: SCHIZOPHRENIA
     Route: 064
  2. PAXIL [Suspect]
  3. OLANZAPINE [Concomitant]
     Indication: SCHIZOPHRENIA
     Route: 064
  4. SSRI [Concomitant]
     Indication: SCHIZOPHRENIA

REACTIONS (10)
  - BACK DISORDER [None]
  - BLOOD CREATINE PHOSPHOKINASE INCREASED [None]
  - CRYING [None]
  - DRUG WITHDRAWAL SYNDROME [None]
  - IRRITABILITY [None]
  - MUSCLE SPASMS [None]
  - NYSTAGMUS [None]
  - PREMATURE RUPTURE OF MEMBRANES [None]
  - PYREXIA [None]
  - TACHYPNOEA [None]
